FAERS Safety Report 4567314-6 (Version None)
Quarter: 2005Q1

REPORT INFORMATION
  Report Type: 
  Country: None (occurrence: None)
  Receive Date: 20050201
  Receipt Date: 20031013
  Transmission Date: 20050727
  Serious: Yes (Death, Hospitalization)
  Sender: FDA-Public Use
  Company Number: PT-ABBOTT-03P-130-0236669-01

PATIENT
  Sex: Female

DRUGS (5)
  1. RITONAVIR SOFT GELATIN CAPSULES [Suspect]
     Indication: HIV INFECTION
     Route: 048
     Dates: start: 20030728, end: 20041117
  2. SAQUINAVIR [Concomitant]
     Indication: HIV INFECTION
     Route: 048
     Dates: start: 20030728, end: 20041117
  3. DIDANOSINE [Concomitant]
     Indication: HIV INFECTION
     Route: 048
     Dates: start: 20030728
  4. TENOFOVIR [Concomitant]
     Indication: HIV INFECTION
     Route: 048
     Dates: start: 20030514
  5. ZALCITABINE [Concomitant]
     Indication: HIV INFECTION
     Route: 048
     Dates: start: 20030728

REACTIONS (2)
  - DEATH [None]
  - RETINAL DETACHMENT [None]
